FAERS Safety Report 9905605 (Version 2)
Quarter: 2014Q2

REPORT INFORMATION
  Report Type: Report from Study
  Country: US (occurrence: US)
  Receive Date: 20140218
  Receipt Date: 20140619
  Transmission Date: 20141212
  Serious: Yes (Hospitalization, Other)
  Sender: FDA-Public Use
  Company Number: US-ALEXION-A201202885

PATIENT
  Sex: 0

DRUGS (1)
  1. SOLIRIS [Suspect]
     Indication: PAROXYSMAL NOCTURNAL HAEMOGLOBINURIA
     Dosage: UNK
     Route: 042

REACTIONS (10)
  - Deep vein thrombosis [Unknown]
  - Urine analysis abnormal [Unknown]
  - Asthenia [Unknown]
  - Haemoglobin decreased [Unknown]
  - Hypertension [Unknown]
  - Fatigue [Unknown]
  - Haemoglobinuria [Unknown]
  - Dyspnoea [Unknown]
  - Muscle spasms [Unknown]
  - Abdominal pain [Unknown]
